FAERS Safety Report 5311072-4 (Version None)
Quarter: 2007Q2

REPORT INFORMATION
  Report Type: 
  Country: None (occurrence: None)
  Receive Date: 20070430
  Receipt Date: 20070426
  Transmission Date: 20071010
  Serious: Yes (Hospitalization)
  Sender: FDA-Public Use
  Company Number: FR-BRISTOL-MYERS SQUIBB COMPANY-13733001

PATIENT
  Age: 27 Year
  Sex: Female
  Weight: 90 kg

DRUGS (5)
  1. SUSTIVA [Suspect]
     Indication: HIV INFECTION
     Route: 048
     Dates: start: 20060726, end: 20060810
  2. REYATAZ [Suspect]
     Indication: HIV INFECTION
     Route: 048
     Dates: start: 20060810, end: 20061025
  3. NORVIR [Concomitant]
     Indication: HIV INFECTION
     Dates: start: 20060808
  4. TRUVADA [Concomitant]
     Indication: HIV INFECTION
     Dates: start: 20060701
  5. PENTAMIDINE AEROSOL [Concomitant]
     Indication: ANTIFUNGAL PROPHYLAXIS
     Dates: start: 20060501, end: 20060801

REACTIONS (2)
  - ALOPECIA [None]
  - RASH [None]
